FAERS Safety Report 8604730-7 (Version None)
Quarter: 2012Q3

REPORT INFORMATION
  Report Type: 
  Country: None (occurrence: None)
  Receive Date: 20120820
  Receipt Date: 20120810
  Transmission Date: 20120928
  Serious: Yes (Other)
  Sender: FDA-Public Use
  Company Number: US-JNJFOC-2009007213

PATIENT
  Sex: Male

DRUGS (3)
  1. DEXTROMETHORPHAN HYDROBROMIDE [Suspect]
     Indication: PRODUCT USED FOR UNKNOWN INDICATION
     Dosage: DAILY DOSE TEXT: UNSPECIFIED
     Route: 065
  2. DIPHENHYDRAMINE HYDROCHLORIDE [Suspect]
     Indication: PRODUCT USED FOR UNKNOWN INDICATION
     Dosage: DAILY DOSE TEXT: UNSPECIFIED
     Route: 065
  3. DIPHENHYDRAMINE HYDROCHLORIDE [Suspect]
     Route: 065

REACTIONS (3)
  - DRUG ABUSE [None]
  - VOMITING [None]
  - INTENTIONAL DRUG MISUSE [None]
